FAERS Safety Report 9579367 (Version 1)
Quarter: 2013Q4

REPORT INFORMATION
  Report Type: Spontaneous
  Country: US (occurrence: US)
  Receive Date: 20131001
  Receipt Date: 20131001
  Transmission Date: 20140711
  Serious: No
  Sender: FDA-Public Use
  Company Number: US-AMGEN-USASP2013017453

PATIENT
  Age: 51 Year
  Sex: Female
  Weight: 61.68 kg

DRUGS (3)
  1. ENBREL [Suspect]
     Indication: PRODUCT USED FOR UNKNOWN INDICATION
     Dosage: 50 MG, QWK
     Route: 058
  2. ZITHROMAX [Concomitant]
     Dosage: UNK
  3. Z-PAK [Concomitant]
     Dosage: UNK

REACTIONS (1)
  - Sinusitis [Unknown]
